FAERS Safety Report 5202906-2 (Version None)
Quarter: 2006Q4

REPORT INFORMATION
  Report Type: 
  Country: None (occurrence: None)
  Receive Date: 20061016
  Receipt Date: 20060906
  Transmission Date: 20070319
  Serious: No
  Sender: FDA-Public Use
  Company Number: 2006SP003205

PATIENT
  Age: 46 Year
  Sex: Female
  Weight: 63.5036 kg

DRUGS (5)
  1. LUNESTA [Suspect]
     Indication: SLEEP DISORDER
     Dosage: 3 MG; HS; ORAL
     Route: 048
     Dates: start: 20060905
  2. QUINIDINE SULFATE [Concomitant]
  3. VALIUM [Concomitant]
  4. PROPACET 100 [Concomitant]
  5. ADDERALL 10 [Concomitant]

REACTIONS (3)
  - FATIGUE [None]
  - MIGRAINE [None]
  - NAUSEA [None]
